FAERS Safety Report 11885226 (Version 1)
Quarter: 2016Q1

REPORT INFORMATION
  Report Type: Spontaneous
  Country: US (occurrence: US)
  Receive Date: 20160104
  Receipt Date: 20160104
  Transmission Date: 20160526
  Serious: Yes (Death)
  Sender: FDA-Public Use
  Company Number: PHEH2015US027411

PATIENT
  Sex: Female

DRUGS (1)
  1. VOTRIENT [Suspect]
     Active Substance: PAZOPANIB HYDROCHLORIDE
     Indication: AGRANULOCYTOSIS
     Dosage: 2 DF, QD
     Route: 065
     Dates: start: 20150817

REACTIONS (2)
  - Product use issue [Unknown]
  - Death [Fatal]
